FAERS Safety Report 4405037-4 (Version None)
Quarter: 2004Q2

REPORT INFORMATION
  Report Type: 
  Country: None (occurrence: None)
  Receive Date: 20040621
  Receipt Date: 20040503
  Transmission Date: 20050107
  Serious: No
  Sender: FDA-Public Use
  Company Number: A-US2004-06045

PATIENT
  Age: 80 Year
  Sex: Male

DRUGS (4)
  1. TRACLEER [Suspect]
     Indication: PULMONARY HYPERTENSION
     Dosage: ORAL
     Route: 048
     Dates: start: 20030301
  2. FOLIC ACID [Concomitant]
  3. VITAMIN B6 [Concomitant]
  4. PROCARDIA [Concomitant]

REACTIONS (3)
  - ECCHYMOSIS [None]
  - INSOMNIA [None]
  - MUSCULAR WEAKNESS [None]
